FAERS Safety Report 17147571 (Version 3)
Quarter: 2020Q1

REPORT INFORMATION
  Report Type: Spontaneous
  Country: FR (occurrence: FR)
  Receive Date: 20191212
  Receipt Date: 20200121
  Transmission Date: 20200409
  Serious: Yes (Other)
  Sender: FDA-Public Use
  Company Number: FR-ROCHE-2490794

PATIENT
  Age: 50 Year
  Sex: Female

DRUGS (2)
  1. DEXTROSE. [Concomitant]
     Active Substance: DEXTROSE
  2. OCREVUS [Suspect]
     Active Substance: OCRELIZUMAB
     Indication: PRODUCT USED FOR UNKNOWN INDICATION
     Route: 065
     Dates: start: 2019

REACTIONS (1)
  - Herpes zoster [Unknown]
